FAERS Safety Report 17694157 (Version 1)
Quarter: 2020Q2

REPORT INFORMATION
  Report Type: Spontaneous
  Country: US (occurrence: US)
  Receive Date: 20200422
  Receipt Date: 20200422
  Transmission Date: 20200714
  Serious: Yes (Other)
  Sender: FDA-Public Use
  Company Number: US-ELI_LILLY_AND_COMPANY-US202004007122

PATIENT
  Sex: Male

DRUGS (1)
  1. BASAGLAR [Suspect]
     Active Substance: INSULIN GLARGINE
     Indication: PRODUCT USED FOR UNKNOWN INDICATION
     Dosage: UNK, UNKNOWN
     Route: 065

REACTIONS (9)
  - Ear disorder [Unknown]
  - Accidental exposure to product [Unknown]
  - Ear infection [Unknown]
  - Vomiting [Unknown]
  - Nerve compression [Unknown]
  - Dysstasia [Unknown]
  - Malaise [Unknown]
  - Weight decreased [Unknown]
  - Balance disorder [Unknown]
